FAERS Safety Report 5117438-X (Version None)
Quarter: 2006Q3

REPORT INFORMATION
  Report Type: 
  Country: None (occurrence: None)
  Receive Date: 20060926
  Receipt Date: 20060911
  Transmission Date: 20061208
  Serious: No
  Sender: FDA-Public Use
  Company Number: USA0508104908

PATIENT
  Age: 59 Year
  Sex: Female
  Weight: 47.2 kg

DRUGS (5)
  1. FORTEO [Suspect]
     Dosage: DAILY (1/D), SUBCUTANEOUS  ; 20 UG,DAILY (1/D)
     Route: 058
     Dates: start: 20050804
  2. FORTEO [Concomitant]
  3. EXTRA STRENGTH TYLENOL [Concomitant]
  4. COLACE (DOCUSATE SODIUM) [Concomitant]
  5. MULTIVITAMINS (ASCORBIC ACID, ERGOCALCIFEROL, FOLIC ACID, NICOTINAMIDE [Concomitant]

REACTIONS (10)
  - ACTIVITIES OF DAILY LIVING IMPAIRED [None]
  - ANXIETY [None]
  - ASTHENIA [None]
  - BLOOD GLUCOSE DECREASED [None]
  - DEPRESSION [None]
  - EMOTIONAL DISORDER [None]
  - IMPAIRED DRIVING ABILITY [None]
  - MENTAL IMPAIRMENT [None]
  - PHARMACEUTICAL PRODUCT COMPLAINT [None]
  - THROAT TIGHTNESS [None]
